FAERS Safety Report 9298992 (Version 1)
Quarter: 2013Q2

REPORT INFORMATION
  Report Type: Spontaneous
  Country: US (occurrence: US)
  Receive Date: 20130520
  Receipt Date: 20130520
  Transmission Date: 20140414
  Serious: No
  Sender: FDA-Public Use
  Company Number: US-SANOFI-AVENTIS-2013SA038839

PATIENT
  Age: 84 Year
  Sex: Female

DRUGS (2)
  1. APIDRA SOLOSTAR [Suspect]
     Indication: TYPE 2 DIABETES MELLITUS
     Dosage: DOSE- 3- 5 UNITS
     Route: 058
     Dates: start: 20130227
  2. SOLOSTAR [Suspect]
     Indication: TYPE 2 DIABETES MELLITUS
     Dates: start: 20130227

REACTIONS (5)
  - Visual acuity reduced [Unknown]
  - Blood glucose increased [Unknown]
  - Expired drug administered [Unknown]
  - Drug ineffective [Unknown]
  - Incorrect storage of drug [Unknown]
